FAERS Safety Report 7272499-7 (Version None)
Quarter: 2011Q1

REPORT INFORMATION
  Report Type: 
  Country: None (occurrence: None)
  Receive Date: 20110126
  Receipt Date: 20110118
  Transmission Date: 20110831
  Serious: Yes (Disabling)
  Sender: FDA-Public Use
  Company Number: 2010MA004514

PATIENT
  Sex: Female

DRUGS (1)
  1. CITALOPRAM HYDROBROMIDE [Suspect]
     Indication: FATIGUE
     Dosage: 40 MG;  PO
     Route: 048

REACTIONS (3)
  - POSTURING [None]
  - MUSCLE SPASMS [None]
  - DYSTONIA [None]
